FAERS Safety Report 24594928 (Version 1)
Quarter: 2024Q4

REPORT INFORMATION
  Report Type: Other
  Country: SE (occurrence: SE)
  Receive Date: 20241108
  Receipt Date: 20241108
  Transmission Date: 20250114
  Serious: Yes (Hospitalization)
  Sender: Atnahs Healthcare
  Company Number: None

PATIENT
  Age: 68 Year
  Sex: Male

DRUGS (2)
  1. NAPROXEN [Suspect]
     Active Substance: NAPROXEN
     Indication: Product used for unknown indication
     Dates: end: 20240923
  2. ELIQUIS [Suspect]
     Active Substance: APIXABAN
     Indication: Atrial fibrillation
     Dates: end: 20240923

REACTIONS (3)
  - Arthralgia [Unknown]
  - Muscle haemorrhage [Unknown]
  - Flank pain [Unknown]

NARRATIVE: CASE EVENT DATE: 20240922
